FAERS Safety Report 11383500 (Version 8)
Quarter: 2018Q3

REPORT INFORMATION
  Report Type: Report from Study
  Country: FR (occurrence: FR)
  Receive Date: 20150814
  Receipt Date: 20180711
  Transmission Date: 20181010
  Serious: Yes (Hospitalization, Other)
  Sender: FDA-Public Use
  Company Number: FR-SA-2015SA097122

PATIENT
  Age: 45 Year
  Sex: Female
  Weight: 44 kg

DRUGS (7)
  1. IRINOTECAN [Suspect]
     Active Substance: IRINOTECAN
     Indication: COLORECTAL CANCER METASTATIC
     Dosage: 220 MG,QCY
     Route: 041
     Dates: start: 20150331, end: 20150331
  2. FLUOROURACIL. [Suspect]
     Active Substance: FLUOROURACIL
     Dosage: 2955 MG,QCY
     Route: 041
     Dates: start: 20150331, end: 20150331
  3. BUPRENORPHINE. [Concomitant]
     Active Substance: BUPRENORPHINE
     Dosage: UNK
  4. FOLINIC ACID [Suspect]
     Active Substance: LEUCOVORIN
     Indication: COLORECTAL CANCER METASTATIC
     Dosage: 616 MG,QCY
     Route: 041
     Dates: start: 20150331, end: 20150331
  5. AFLIBERCEPT [Suspect]
     Active Substance: AFLIBERCEPT
     Indication: COLORECTAL CANCER METASTATIC
     Dosage: 192 MG,QCY
     Route: 041
     Dates: start: 20150331, end: 20150331
  6. FLUOROURACIL. [Suspect]
     Active Substance: FLUOROURACIL
     Indication: COLORECTAL CANCER METASTATIC
     Dosage: 492 MG,QCY
     Route: 040
     Dates: start: 20150331, end: 20150331
  7. SPASFON [PHLOROGLUCINOL] [Concomitant]
     Dosage: UNK

REACTIONS (6)
  - Pneumothorax [Recovered/Resolved]
  - Hepatocellular injury [Not Recovered/Not Resolved]
  - Decreased appetite [Not Recovered/Not Resolved]
  - Asthenia [Not Recovered/Not Resolved]
  - Abdominal pain [Not Recovered/Not Resolved]
  - Fall [Recovered/Resolved with Sequelae]

NARRATIVE: CASE EVENT DATE: 20150408
